FAERS Safety Report 6946025-3 (Version None)
Quarter: 2010Q3

REPORT INFORMATION
  Report Type: 
  Country: None (occurrence: None)
  Receive Date: 20100827
  Receipt Date: 20100528
  Transmission Date: 20110219
  Serious: No
  Sender: FDA-Public Use
  Company Number: A0865056A

PATIENT
  Age: 50 Year
  Sex: Female

DRUGS (1)
  1. ZOVIRAX [Suspect]
     Indication: NASAL ULCER
     Dosage: 1APP UNKNOWN
     Route: 045

REACTIONS (3)
  - NASAL DISCOMFORT [None]
  - OFF LABEL USE [None]
  - VISION BLURRED [None]
